FAERS Safety Report 5960751-4 (Version None)
Quarter: 2008Q4

REPORT INFORMATION
  Report Type: 
  Country: None (occurrence: None)
  Receive Date: 20081120
  Receipt Date: 20081113
  Transmission Date: 20090506
  Serious: Yes (Other)
  Sender: FDA-Public Use
  Company Number: JP-PFIZER INC-2008093891

PATIENT
  Age: 70 Year
  Sex: Male

DRUGS (4)
  1. PREDNISOLONE [Suspect]
     Dosage: DAILY DOSE:50MG
     Dates: start: 20080221
  2. METHYLPREDNISOLONE SODIUM SUCCINATE [Suspect]
     Indication: IDIOPATHIC PULMONARY FIBROSIS
     Dosage: DAILY DOSE:1GRAM
     Dates: start: 20080319
  3. CYCLOSPORINE [Suspect]
     Dates: start: 20080101
  4. INSULIN [Concomitant]
     Dates: start: 20080101

REACTIONS (1)
  - PULMONARY MYCOSIS [None]
